FAERS Safety Report 8280970-4 (Version None)
Quarter: 2012Q2

REPORT INFORMATION
  Report Type: 
  Country: None (occurrence: None)
  Receive Date: 20120412
  Receipt Date: 20120409
  Transmission Date: 20120825
  Serious: Yes (Hospitalization, Other)
  Sender: FDA-Public Use
  Company Number: CA-ABBOTT-12P-028-0922938-00

PATIENT
  Sex: Female

DRUGS (1)
  1. HUMIRA [Suspect]
     Indication: RHEUMATOID ARTHRITIS
     Route: 058
     Dates: start: 20100922

REACTIONS (7)
  - VIRAL INFECTION [None]
  - FATIGUE [None]
  - FALL [None]
  - HEAD INJURY [None]
  - MALAISE [None]
  - LOSS OF CONSCIOUSNESS [None]
  - DIARRHOEA [None]
